FAERS Safety Report 16672981 (Version 1)
Quarter: 2019Q3

REPORT INFORMATION
  Report Type: Report from Study
  Country: GB (occurrence: GB)
  Receive Date: 20190806
  Receipt Date: 20190806
  Transmission Date: 20191004
  Serious: Yes (Other)
  Sender: FDA-Public Use
  Company Number: GB-MYLANLABS-2019M1058874

PATIENT
  Sex: Male

DRUGS (1)
  1. TOBI PODHALER [Suspect]
     Active Substance: TOBRAMYCIN
     Indication: CYSTIC FIBROSIS
     Dosage: 4 DF, BID (4 CAPSULES IN THE MORNING AND 4 CAPSULES IN THE EVENING)
     Route: 055
     Dates: start: 20190430, end: 2019

REACTIONS (4)
  - Cough [Unknown]
  - Sputum increased [Unknown]
  - Lower respiratory tract infection [Unknown]
  - Chest discomfort [Unknown]

NARRATIVE: CASE EVENT DATE: 2019
